FAERS Safety Report 19649710 (Version 2)
Quarter: 2021Q3

REPORT INFORMATION
  Report Type: Report from Study
  Country: SG (occurrence: SG)
  Receive Date: 20210802
  Receipt Date: 20210909
  Transmission Date: 20211014
  Serious: Yes (Death)
  Sender: FDA-Public Use
  Company Number: NVSC2021SG173065

PATIENT
  Sex: Male
  Weight: 63.1 kg

DRUGS (1)
  1. INC280 [Suspect]
     Active Substance: CAPMATINIB
     Indication: LUNG CARCINOMA CELL TYPE UNSPECIFIED STAGE IV
     Dosage: 300 MG, BID (STRENGTH 100 MG)
     Route: 048
     Dates: start: 20200921

REACTIONS (2)
  - Lung carcinoma cell type unspecified stage IV [Fatal]
  - Malignant neoplasm progression [Fatal]
